FAERS Safety Report 17363036 (Version 1)
Quarter: 2020Q1

REPORT INFORMATION
  Report Type: Report from Study
  Country: US (occurrence: US)
  Receive Date: 20200203
  Receipt Date: 20200203
  Transmission Date: 20200409
  Serious: Yes (Hospitalization, Other)
  Sender: FDA-Public Use
  Company Number: US-PFIZER INC-2020042689

PATIENT
  Age: 69 Year
  Sex: Male
  Weight: 84 kg

DRUGS (3)
  1. PACLITAXEL. [Suspect]
     Active Substance: PACLITAXEL
     Indication: OESOPHAGEAL CARCINOMA
     Dosage: 104 MG
     Route: 042
     Dates: start: 20191218, end: 20200115
  2. CARBOPLATIN. [Suspect]
     Active Substance: CARBOPLATIN
     Indication: OESOPHAGEAL CARCINOMA
     Dosage: 210.6 MG (AUC 2)
     Route: 042
     Dates: start: 20191218, end: 20200115
  3. AVELUMAB [Suspect]
     Active Substance: AVELUMAB
     Indication: OESOPHAGEAL CARCINOMA
     Dosage: 872 MG (10 MG/KG)
     Route: 042
     Dates: start: 20200115

REACTIONS (3)
  - Hyperkalaemia [Recovered/Resolved]
  - Hypotension [Recovered/Resolved]
  - Acute kidney injury [Not Recovered/Not Resolved]

NARRATIVE: CASE EVENT DATE: 20200116
